FAERS Safety Report 5892998-X (Version None)
Quarter: 2008Q3

REPORT INFORMATION
  Report Type: 
  Country: None (occurrence: None)
  Receive Date: 20080923
  Receipt Date: 20070606
  Transmission Date: 20090109
  Serious: No
  Sender: FDA-Public Use
  Company Number: US-ASTRAZENECA-2007UW13670

PATIENT
  Age: 71 Year
  Sex: Female
  Weight: 87.1 kg

DRUGS (10)
  1. SEROQUEL [Suspect]
     Route: 048
     Dates: start: 20011201
  2. SEROQUEL [Suspect]
     Route: 048
     Dates: start: 20011201
  3. ACTOS [Concomitant]
  4. SYNTHROID [Concomitant]
  5. VYTORIN [Concomitant]
  6. PRIMIDONE [Concomitant]
     Indication: TREMOR
  7. DETROL [Concomitant]
  8. ALPRAZOLAM [Concomitant]
  9. LEXAPRO [Concomitant]
  10. DEPAKOTE [Concomitant]

REACTIONS (3)
  - DECREASED APPETITE [None]
  - DIABETES MELLITUS [None]
  - WEIGHT INCREASED [None]
